FAERS Safety Report 5102047-9 (Version None)
Quarter: 2006Q3

REPORT INFORMATION
  Report Type: 
  Country: None (occurrence: None)
  Receive Date: 20060908
  Receipt Date: 20060818
  Transmission Date: 20061208
  Serious: Yes (Other)
  Sender: FDA-Public Use
  Company Number: US200608004280

PATIENT
  Age: 65 Year
  Sex: Female

DRUGS (4)
  1. CYMBALTA [Suspect]
     Dosage: 60 MG
     Dates: start: 20060201
  2. DETROL [Concomitant]
  3. ADDERALL (AMFETAMINE ASPARTATE, AMFETAMINE SULFATE, DEXAMFETAMINE SACC [Concomitant]
  4. TRILAFON [Concomitant]

REACTIONS (3)
  - COGNITIVE DISORDER [None]
  - PARKINSON'S DISEASE [None]
  - SPEECH DISORDER [None]
